FAERS Safety Report 8047571-4 (Version None)
Quarter: 2012Q1

REPORT INFORMATION
  Report Type: 
  Country: None (occurrence: None)
  Receive Date: 20120116
  Receipt Date: 20120105
  Transmission Date: 20120608
  Serious: Yes (Death, Hospitalization)
  Sender: FDA-Public Use
  Company Number: US-GLAXOSMITHKLINE-A0942015A

PATIENT
  Age: 61 Year
  Sex: Female

DRUGS (6)
  1. INSULIN [Concomitant]
  2. NORVASC [Concomitant]
  3. AVANDARYL [Suspect]
     Indication: DIABETES MELLITUS
     Route: 048
     Dates: start: 20061001, end: 20061001
  4. LIPITOR [Concomitant]
  5. AVANDIA [Suspect]
     Indication: DIABETES MELLITUS
     Dosage: 4MG PER DAY
     Route: 048
     Dates: start: 20061001, end: 20061201
  6. DIOVAN [Concomitant]

REACTIONS (6)
  - CARDIAC FAILURE [None]
  - CORONARY ARTERY DISEASE [None]
  - SUDDEN CARDIAC DEATH [None]
  - MULTI-ORGAN FAILURE [None]
  - MYOCARDIAL INFARCTION [None]
  - ISCHAEMIC CARDIOMYOPATHY [None]
